FAERS Safety Report 13645604 (Version 1)
Quarter: 2017Q2

REPORT INFORMATION
  Report Type: Spontaneous
  Country: US (occurrence: US)
  Receive Date: 20170613
  Receipt Date: 20170613
  Transmission Date: 20170830
  Serious: No
  Sender: FDA-Public Use
  Company Number: US-ELI_LILLY_AND_COMPANY-US201706002243

PATIENT
  Age: 75 Year
  Sex: Female

DRUGS (4)
  1. HYDROCHLOROTHIAZIDE W/POTASSIUM CHLORIDE [Concomitant]
     Indication: URINE CALCIUM
  2. DIOVAN [Concomitant]
     Active Substance: VALSARTAN
     Indication: HYPERTENSION
  3. PRAVASTATIN. [Concomitant]
     Active Substance: PRAVASTATIN
     Indication: BLOOD CHOLESTEROL INCREASED
  4. FORTEO [Suspect]
     Active Substance: TERIPARATIDE
     Indication: PRODUCT USED FOR UNKNOWN INDICATION
     Dosage: UNK, UNKNOWN
     Route: 065
     Dates: start: 20170418

REACTIONS (4)
  - Neck pain [Recovered/Resolved]
  - Musculoskeletal stiffness [Recovering/Resolving]
  - Incorrect product storage [Unknown]
  - Drug dose omission [Unknown]

NARRATIVE: CASE EVENT DATE: 20170514
